FAERS Safety Report 20191931 (Version 2)
Quarter: 2021Q4

REPORT INFORMATION
  Report Type: Spontaneous
  Country: JP (occurrence: JP)
  Receive Date: 20211216
  Receipt Date: 20211229
  Transmission Date: 20220303
  Serious: Yes (Hospitalization)
  Sender: FDA-Public Use
  Company Number: JP-TEVA-2021-JP-1986846

PATIENT
  Age: 83 Year
  Sex: Female

DRUGS (2)
  1. PREDNISOLONE [Suspect]
     Active Substance: PREDNISOLONE
     Indication: Eosinophilic pneumonia chronic
     Dosage: 20 MILLIGRAM DAILY;
     Route: 065
  2. PREDNISOLONE [Suspect]
     Active Substance: PREDNISOLONE
     Dosage: 7.5 MILLIGRAM DAILY;
     Route: 065

REACTIONS (4)
  - Moraxella infection [Recovering/Resolving]
  - Eosinophilic pneumonia chronic [Recovering/Resolving]
  - Pseudomonas infection [Recovering/Resolving]
  - Pneumonia bacterial [Recovering/Resolving]
